FAERS Safety Report 19375138 (Version 1)
Quarter: 2021Q2

REPORT INFORMATION
  Report Type: Spontaneous
  Country: KG (occurrence: KG)
  Receive Date: 20210604
  Receipt Date: 20210604
  Transmission Date: 20210717
  Serious: Yes (Other)
  Sender: FDA-Public Use
  Company Number: KG-BAYER-2021-150719

PATIENT
  Age: 27 Year
  Sex: Female

DRUGS (1)
  1. DROSPIRENONE + ETHINYLESTRADIOL [Suspect]
     Active Substance: DROSPIRENONE\ETHINYL ESTRADIOL
     Route: 048

REACTIONS (5)
  - Motor dysfunction [Recovered/Resolved]
  - Cerebral infarction [Recovered/Resolved]
  - Lacunar stroke [Recovered/Resolved]
  - Arterial occlusive disease [Recovered/Resolved]
  - Hyperbilirubinaemia [Recovered/Resolved]
